FAERS Safety Report 5397092-2 (Version None)
Quarter: 2007Q3

REPORT INFORMATION
  Report Type: 
  Country: None (occurrence: None)
  Receive Date: 20070723
  Receipt Date: 20070710
  Transmission Date: 20080115
  Serious: Yes (Other)
  Sender: FDA-Public Use
  Company Number: 2007-157613-NL

PATIENT
  Age: 27 Year
  Sex: Female
  Weight: 59 kg

DRUGS (1)
  1. NUVARING [Suspect]
     Dosage: VAGINAL
     Route: 067

REACTIONS (5)
  - COMPLICATION OF DEVICE REMOVAL [None]
  - CONTRACEPTIVE DEVICE COMPLICATION [None]
  - PHARMACEUTICAL PRODUCT COMPLAINT [None]
  - VAGINAL DISCHARGE [None]
  - VAGINAL INFLAMMATION [None]
